FAERS Safety Report 10285285 (Version 2)
Quarter: 2014Q3

REPORT INFORMATION
  Report Type: Spontaneous
  Country: DE (occurrence: BR)
  Receive Date: 20140708
  Receipt Date: 20140828
  Transmission Date: 20150326
  Serious: Yes (Other)
  Sender: FDA-Public Use
  Company Number: BR-FRI-1000068779

PATIENT
  Age: 82 Year
  Sex: Female

DRUGS (8)
  1. SPIRONOLACTONE. [Concomitant]
     Active Substance: SPIRONOLACTONE
     Indication: HYPERTENSION
     Dosage: 20 MG AS REQUIRED EVERY OTHER DAY
     Route: 048
     Dates: start: 20140624
  2. RIVOTRIL [Concomitant]
     Active Substance: CLONAZEPAM
     Indication: INSOMNIA
     Route: 048
     Dates: start: 20140520
  3. RECONTER [Concomitant]
     Indication: PANIC ATTACK
     Dosage: 10 MG
     Route: 048
     Dates: start: 20140520
  4. MEMANTINE [Suspect]
     Active Substance: MEMANTINE
     Indication: DEMENTIA ALZHEIMER^S TYPE
     Dosage: 10 MG
     Route: 048
     Dates: start: 20140520, end: 20140618
  5. MEMANTINE [Suspect]
     Active Substance: MEMANTINE
     Dosage: 5MG IN THE MORNING, 10 MG AT NIGHT
     Route: 048
     Dates: start: 2014
  6. DIAMICRON [Concomitant]
     Active Substance: GLICLAZIDE
     Indication: DIABETES MELLITUS
     Route: 048
     Dates: start: 20140520
  7. MEMANTINE [Suspect]
     Active Substance: MEMANTINE
     Indication: DEMENTIA ALZHEIMER^S TYPE
     Dosage: 10 MG
     Route: 048
     Dates: start: 20140621, end: 2014
  8. ATENOLOL. [Concomitant]
     Active Substance: ATENOLOL
     Indication: HYPERTENSION
     Dosage: 25 MG
     Route: 048
     Dates: start: 20100624

REACTIONS (3)
  - Tremor [Recovering/Resolving]
  - Gait disturbance [Recovering/Resolving]
  - Convulsion [Recovering/Resolving]

NARRATIVE: CASE EVENT DATE: 20140527
